FAERS Safety Report 9685461 (Version 1)
Quarter: 2013Q4

REPORT INFORMATION
  Report Type: Spontaneous
  Country: US (occurrence: US)
  Receive Date: 20131113
  Receipt Date: 20131113
  Transmission Date: 20140711
  Serious: Yes (Other)
  Sender: FDA-Public Use
  Company Number: US-ASTELLAS-2013US011675

PATIENT
  Age: 73 Year
  Sex: Female

DRUGS (9)
  1. PROGRAF [Suspect]
     Indication: LIVER TRANSPLANT
     Dosage: 1 MG, BID
     Route: 048
  2. LEVOTHYROXINE [Concomitant]
     Indication: THYROID DISORDER
     Dosage: 100 UG, UID/QD
     Route: 048
  3. CARVEDILOL [Concomitant]
     Indication: CARDIAC FAILURE CONGESTIVE
     Dosage: 6.25 MG, BID
  4. GABAPENTIN [Concomitant]
     Indication: NERVE INJURY
     Dosage: 300 MG, BID
     Route: 048
  5. ONDANSETRON [Concomitant]
     Indication: NAUSEA
     Dosage: 4 MG, BID
     Route: 048
  6. OXYCODONE [Concomitant]
     Indication: PAIN
     Dosage: 15 MG, QID
     Route: 048
  7. METHADONE [Concomitant]
     Indication: PAIN
     Dosage: 1 TAB, FIVE TIMES DAILY
     Route: 048
  8. SIMVASTATIN [Concomitant]
     Indication: BLOOD CHOLESTEROL INCREASED
     Dosage: 40 MG, UID/QD
     Route: 048
  9. CLONAZEPAM [Concomitant]
     Indication: MUSCLE RELAXANT THERAPY
     Dosage: 2 MG, UID/QD
     Route: 048

REACTIONS (3)
  - Surgery [Unknown]
  - Exostosis [Recovering/Resolving]
  - Diabetes mellitus [Unknown]
